FAERS Safety Report 11427407 (Version 2)
Quarter: 2015Q3

REPORT INFORMATION
  Report Type: Spontaneous
  Country: US (occurrence: US)
  Receive Date: 20150827
  Receipt Date: 20150929
  Transmission Date: 20151125
  Serious: Yes (Hospitalization)
  Sender: FDA-Public Use
  Company Number: US-SA-2015SA113781

PATIENT
  Age: 66 Year
  Sex: Female

DRUGS (1)
  1. FABRAZYME [Suspect]
     Active Substance: AGALSIDASE BETA
     Indication: FABRY^S DISEASE
     Route: 042
     Dates: start: 20120711

REACTIONS (2)
  - Cardiac disorder [Unknown]
  - Extrasystoles [Recovered/Resolved]

NARRATIVE: CASE EVENT DATE: 20150714
